FAERS Safety Report 9366037 (Version 1)
Quarter: 2013Q2

REPORT INFORMATION
  Report Type: Spontaneous
  Country: FR (occurrence: FR)
  Receive Date: 20130625
  Receipt Date: 20130625
  Transmission Date: 20140414
  Serious: Yes (Death, Other)
  Sender: FDA-Public Use
  Company Number: FR-TEVA-414640ISR

PATIENT
  Age: 80 Year
  Sex: Female

DRUGS (4)
  1. FUROSEMIDE TEVA 40 MG [Suspect]
     Indication: HYPERTENSION
     Dates: start: 2007
  2. FUROSEMIDE TEVA 40 MG [Suspect]
     Indication: FLUID RETENTION
  3. APROVEL [Concomitant]
     Indication: HYPERTENSION
  4. OXYGEN [Concomitant]
     Indication: RESPIRATORY FAILURE
     Dosage: 2 L/MIN 24 H/24

REACTIONS (3)
  - Respiratory failure [Fatal]
  - Cardiac failure [Fatal]
  - Somnolence [Unknown]
